FAERS Safety Report 4695789-0 (Version None)
Quarter: 2005Q2

REPORT INFORMATION
  Report Type: 
  Country: None (occurrence: None)
  Receive Date: 20050621
  Receipt Date: 20050608
  Transmission Date: 20051028
  Serious: Yes (Death)
  Sender: FDA-Public Use
  Company Number: JP-JNJFOC-20050201104

PATIENT
  Age: 77 Year
  Sex: Male

DRUGS (4)
  1. TAVANIC [Suspect]
     Indication: URINARY TRACT INFECTION
     Route: 049
     Dates: start: 20041222, end: 20041223
  2. ACETYLCYSTEINE [Concomitant]
  3. VOMEX [Concomitant]
     Route: 030
  4. VOMEX [Concomitant]
     Route: 030

REACTIONS (2)
  - MALIGNANT NEOPLASM PROGRESSION [None]
  - SHOCK [None]
